FAERS Safety Report 8857016 (Version 2)
Quarter: 2016Q2

REPORT INFORMATION
  Report Type: Spontaneous
  Country: US (occurrence: US)
  Receive Date: 20121023
  Receipt Date: 20160412
  Transmission Date: 20160815
  Serious: No
  Sender: FDA-Public Use
  Company Number: US-AMGEN-USASP2012055870

PATIENT
  Age: 59 Year
  Sex: Female
  Weight: 56.69 kg

DRUGS (5)
  1. SLEEPING                           /00000402/ [Concomitant]
     Dosage: 25 MG,
  2. CALCIUM [Concomitant]
     Active Substance: CALCIUM
     Dosage: 500 UNK,
  3. ENBREL [Suspect]
     Active Substance: ETANERCEPT
     Indication: PSORIATIC ARTHROPATHY
     Dosage: 50 MG/ML, QWK
     Route: 058
     Dates: start: 2011
  4. EVISTA [Concomitant]
     Active Substance: RALOXIFENE HYDROCHLORIDE
     Dosage: 60 MG,
  5. MULTIVITAMIN                       /00097801/ [Concomitant]
     Active Substance: VITAMINS
     Dosage: UNK,

REACTIONS (5)
  - Depression [Unknown]
  - Wrong technique in product usage process [Unknown]
  - Injection site mass [Recovered/Resolved]
  - Injection site pain [Unknown]
  - Lethargy [Unknown]

NARRATIVE: CASE EVENT DATE: 2011
